FAERS Safety Report 16154420 (Version 1)
Quarter: 2019Q2

REPORT INFORMATION
  Report Type: Spontaneous
  Country: FR (occurrence: FR)
  Receive Date: 20190403
  Receipt Date: 20190403
  Transmission Date: 20190711
  Serious: Yes (Hospitalization)
  Sender: FDA-Public Use
  Company Number: FR-PFIZER INC-2019134520

PATIENT
  Age: 66 Year
  Sex: Female

DRUGS (14)
  1. SERTRALINE HCL [Suspect]
     Active Substance: SERTRALINE HYDROCHLORIDE
     Dosage: 25 MG, 1X/DAY, 1 CAPSULE IN THE MORNING
     Route: 048
     Dates: start: 20180211
  2. SOTALOL. [Suspect]
     Active Substance: SOTALOL
     Dosage: 160 MG, 1X/DAY, 1 TABLET - IN THE MORNING AND EVENING
     Route: 048
     Dates: end: 20180211
  3. SERTRALINE HCL [Suspect]
     Active Substance: SERTRALINE HYDROCHLORIDE
     Indication: TORSADE DE POINTES
     Dosage: UNK
     Route: 065
     Dates: start: 20180216, end: 20180223
  4. SOTALOL. [Suspect]
     Active Substance: SOTALOL
     Indication: TORSADE DE POINTES
     Dosage: UNK
     Route: 065
     Dates: start: 20180215, end: 20180223
  5. PARACETAMOL [Concomitant]
     Active Substance: ACETAMINOPHEN
     Dosage: 1500 MG, 1X/DAY, 1 TABLET IN THE MORNING,AFTERNOON AND EVENING
     Route: 048
     Dates: end: 20180211
  6. DESLORATADINE. [Concomitant]
     Active Substance: DESLORATADINE
     Dosage: 5 MG, 1X/DAY, 1 TABLET IN THE MORNING
     Route: 048
     Dates: end: 20180211
  7. AMIODARONE [Suspect]
     Active Substance: AMIODARONE
     Indication: ATRIAL FIBRILLATION
     Dosage: 1200 MG, UNK, (1200 MG CONTINUOUSLY FOR ONE)
     Route: 042
     Dates: start: 20180214, end: 20180214
  8. ALPRAZOLAM. [Concomitant]
     Active Substance: ALPRAZOLAM
     Dosage: 0.5 MG, 1X/DAY, 1 TABLET IN THE EVENING
     Route: 048
     Dates: end: 20180211
  9. LORMETAZEPAM [Concomitant]
     Active Substance: LORMETAZEPAM
     Dosage: 2 MG, 1X/DAY, 1 TABLET WHEN GOING TO BED
     Route: 048
     Dates: end: 20180211
  10. WARFARIN [Concomitant]
     Active Substance: WARFARIN
     Dosage: 2 MG, 1X/DAY, 1 TABLET IN THE EVENING
     Route: 048
     Dates: end: 20180211
  11. AMIODARONE [Suspect]
     Active Substance: AMIODARONE
     Indication: TORSADE DE POINTES
     Dosage: 200 MG, 1X/DAY, ORAL DOSE OF 200 MG PER DAY
     Route: 048
     Dates: start: 20180215, end: 20180223
  12. BACLOFEN. [Concomitant]
     Active Substance: BACLOFEN
     Dosage: 30 MG, 1X/DAY, 1 TABLET IN THE MORNING, AFTERNOON AND EVENING
     Route: 048
     Dates: end: 20180211
  13. ACETYLSALICYLATE LYSINE [Concomitant]
     Active Substance: ASPIRIN DL-LYSINE
     Dosage: 160 MG, 1X/DAY, 1 BAG IN THE AFTERNOON
     Route: 048
     Dates: end: 20180211
  14. CEFOTAXIME [Concomitant]
     Active Substance: CEFOTAXIME SODIUM
     Indication: ESCHERICHIA URINARY TRACT INFECTION
     Dosage: 16 G, 1X/DAY, A DOSE OF 16G PER DAY INTRAVENOUSLY
     Route: 042
     Dates: start: 20180211, end: 20180211

REACTIONS (22)
  - Influenza [Recovered/Resolved]
  - Acute coronary syndrome [Recovered/Resolved]
  - Atrial fibrillation [Recovered/Resolved]
  - Electrocardiogram ST segment elevation [Recovered/Resolved]
  - Blood pressure immeasurable [Recovered/Resolved]
  - Electrocardiogram QT prolonged [Recovered/Resolved]
  - Femoral neck fracture [Recovered/Resolved]
  - Livedo reticularis [Recovered/Resolved]
  - Septic shock [Recovered/Resolved]
  - Somnolence [Recovered/Resolved]
  - Electrocardiogram T wave abnormal [Recovered/Resolved]
  - Hypoxia [Recovered/Resolved]
  - Altered state of consciousness [Recovered/Resolved]
  - Fall [Recovered/Resolved]
  - Medication error [Recovered/Resolved]
  - International normalised ratio increased [Recovered/Resolved]
  - Torsade de pointes [Recovered/Resolved]
  - Coronary artery stenosis [Recovered/Resolved]
  - Escherichia urinary tract infection [Recovered/Resolved]
  - Livedo reticularis [Recovered/Resolved]
  - Cardiac arrest [Recovered/Resolved]
  - Medication error [Recovered/Resolved]

NARRATIVE: CASE EVENT DATE: 20180210
